FAERS Safety Report 8336444-5 (Version None)
Quarter: 2012Q2

REPORT INFORMATION
  Report Type: 
  Country: None (occurrence: None)
  Receive Date: 20120504
  Receipt Date: 20120501
  Transmission Date: 20120825
  Serious: Yes (Other)
  Sender: FDA-Public Use
  Company Number: US-PFIZER INC-2012107050

PATIENT
  Sex: Female

DRUGS (2)
  1. PRISTIQ [Suspect]
     Dosage: UNK
  2. COZAAR [Concomitant]
     Dosage: UNK

REACTIONS (2)
  - HEART RATE INCREASED [None]
  - BLOOD PRESSURE ABNORMAL [None]
